FAERS Safety Report 18080423 (Version 1)
Quarter: 2020Q3

REPORT INFORMATION
  Report Type: Spontaneous
  Country: US (occurrence: US)
  Receive Date: 20200728
  Receipt Date: 20200728
  Transmission Date: 20201103
  Serious: No
  Sender: FDA-Public Use
  Company Number: US-SA-2020SA193487

PATIENT

DRUGS (1)
  1. AVALIDE [Suspect]
     Active Substance: HYDROCHLOROTHIAZIDE\IRBESARTAN
     Indication: HYPERTENSION
     Dosage: TAKING FOR A DAY
     Route: 065

REACTIONS (2)
  - Hypertension [Not Recovered/Not Resolved]
  - Drug ineffective [Not Recovered/Not Resolved]
